FAERS Safety Report 25256189 (Version 3)
Quarter: 2025Q2

REPORT INFORMATION
  Report Type: Spontaneous
  Country: US (occurrence: US)
  Receive Date: 20250430
  Receipt Date: 20250620
  Transmission Date: 20250716
  Serious: Yes (Hospitalization)
  Sender: PFIZER
  Company Number: US-PFIZER INC-202500091167

PATIENT
  Age: 84 Year
  Sex: Male
  Weight: 76.1 kg

DRUGS (1)
  1. VYNDAMAX [Suspect]
     Active Substance: TAFAMIDIS
     Indication: Acquired ATTR amyloidosis
     Dosage: ONE 61 MG CAPSULE ONCE DAILY
     Route: 048

REACTIONS (1)
  - Chronic left ventricular failure [Unknown]
